FAERS Safety Report 9701990 (Version 1)
Quarter: 2013Q4

REPORT INFORMATION
  Report Type: Report from Study
  Country: JP (occurrence: JP)
  Receive Date: 20131121
  Receipt Date: 20131121
  Transmission Date: 20140711
  Serious: Yes (Hospitalization)
  Sender: FDA-Public Use
  Company Number: JP-B.I. PHARMACEUTICALS,INC./RIDGEFIELD-2013-BI-38253NB

PATIENT
  Age: 81 Year
  Sex: Female
  Weight: 68.6 kg

DRUGS (6)
  1. PRAZAXA [Suspect]
     Indication: CEREBROVASCULAR ACCIDENT PROPHYLAXIS
     Dosage: 150 MG
     Route: 048
     Dates: start: 20121214, end: 20130622
  2. ARTIST [Concomitant]
     Dosage: 2.5 MG
     Route: 048
     Dates: start: 20121214
  3. DIART [Concomitant]
     Dosage: 30 MG
     Route: 048
     Dates: start: 20121214
  4. ALDACTONE A [Concomitant]
     Dosage: 25 MG
     Route: 048
     Dates: start: 20111214
  5. TAKEPRON [Concomitant]
     Indication: PROPHYLAXIS
     Dosage: 15 MG
     Route: 048
     Dates: start: 20121214
  6. ZYLORIC [Concomitant]
     Dosage: 100 MG
     Route: 048
     Dates: start: 20121214

REACTIONS (1)
  - Arterial occlusive disease [Recovered/Resolved]
